FAERS Safety Report 9801241 (Version 2)
Quarter: 2014Q1

REPORT INFORMATION
  Report Type: Spontaneous
  Country: US (occurrence: US)
  Receive Date: 20140107
  Receipt Date: 20140320
  Transmission Date: 20141002
  Serious: No
  Sender: FDA-Public Use
  Company Number: US-B.I. PHARMACEUTICALS,INC./RIDGEFIELD-2014-BI-00032BP

PATIENT
  Age: 90 Year
  Sex: Female
  Weight: 45 kg

DRUGS (4)
  1. COMBIVENT [Suspect]
     Indication: CHRONIC OBSTRUCTIVE PULMONARY DISEASE
     Dosage: STRENGTH: 20 MCG / 100 MCG; DAILY DOSE: 80 MCG/ 400 MCG
     Route: 055
     Dates: start: 201307
  2. CALCIUM + D [Concomitant]
     Route: 048
  3. GLIPERIDE [Concomitant]
     Indication: DIABETES MELLITUS
     Dosage: 10 MG
     Route: 048
  4. VITAMIN [Concomitant]
     Route: 048

REACTIONS (3)
  - Dyspnoea [Not Recovered/Not Resolved]
  - Hypertension [Recovered/Resolved]
  - Product quality issue [Recovered/Resolved]
